FAERS Safety Report 24566236 (Version 1)
Quarter: 2024Q4

REPORT INFORMATION
  Report Type: Spontaneous
  Country: US (occurrence: US)
  Receive Date: 20241030
  Receipt Date: 20241030
  Transmission Date: 20250114
  Serious: Yes (Hospitalization, Other)
  Sender: NOVO NORDISK
  Company Number: US-NOVOPROD-1304733

PATIENT
  Age: 86 Year
  Sex: Male

DRUGS (3)
  1. OZEMPIC [Suspect]
     Active Substance: SEMAGLUTIDE
     Dosage: UNK (TOOK 2 DOSE OF UNKNOWN STRENGTH)
     Route: 058
     Dates: start: 202407
  2. OZEMPIC [Suspect]
     Active Substance: SEMAGLUTIDE
     Indication: Type 2 diabetes mellitus
     Dosage: 2MG
     Route: 058
     Dates: start: 2023, end: 20240623
  3. OZEMPIC [Suspect]
     Active Substance: SEMAGLUTIDE
     Indication: Type 2 diabetes mellitus
     Dosage: 0.25 MG, QW
     Route: 058
     Dates: start: 20241023

REACTIONS (5)
  - Fall [Unknown]
  - Dementia Alzheimer^s type [Unknown]
  - Incontinence [Unknown]
  - Condition aggravated [Unknown]
  - Product communication issue [Unknown]

NARRATIVE: CASE EVENT DATE: 20240622
